FAERS Safety Report 5067150-0 (Version None)
Quarter: 2006Q3

REPORT INFORMATION
  Report Type: 
  Country: None (occurrence: None)
  Receive Date: 20060727
  Receipt Date: 20060715
  Transmission Date: 20061208
  Serious: Yes (Other)
  Sender: FDA-Public Use
  Company Number: 2006068186

PATIENT
  Age: 32 Year
  Sex: Female
  Weight: 84.8226 kg

DRUGS (1)
  1. GEODON [Suspect]
     Indication: ANXIETY
     Dosage: 20 MG (20 MG, 1 IN 1 D), ORAL
     Route: 048
     Dates: start: 20060514, end: 20060519

REACTIONS (11)
  - DECREASED ACTIVITY [None]
  - EYE DISORDER [None]
  - FACIAL PALSY [None]
  - FEELING ABNORMAL [None]
  - MOTOR DYSFUNCTION [None]
  - MUSCLE TWITCHING [None]
  - NERVOUS SYSTEM DISORDER [None]
  - PAIN [None]
  - PSYCHOMOTOR SKILLS IMPAIRED [None]
  - SENSATION OF HEAVINESS [None]
  - TREMOR [None]
